FAERS Safety Report 7114376-8 (Version None)
Quarter: 2010Q4

REPORT INFORMATION
  Report Type: 
  Country: None (occurrence: None)
  Receive Date: 20101119
  Receipt Date: 20101109
  Transmission Date: 20110411
  Serious: Yes (Other)
  Sender: FDA-Public Use
  Company Number: US-ABBOTT-10P-163-0666188-00

PATIENT
  Sex: Female
  Weight: 39.044 kg

DRUGS (12)
  1. HUMIRA [Suspect]
     Indication: CROHN'S DISEASE
     Route: 058
     Dates: start: 20080101
  2. HUMIRA [Suspect]
     Dates: start: 20090101
  3. HUMIRA [Suspect]
     Dates: start: 20101105
  4. MORPHINE [Concomitant]
     Indication: PRODUCT USED FOR UNKNOWN INDICATION
  5. FENTANYL [Concomitant]
     Indication: PRODUCT USED FOR UNKNOWN INDICATION
     Dosage: 50 MCG/HOUR, CHANGE EVERY 72 HOURS
  6. ZINC [Concomitant]
     Indication: PRODUCT USED FOR UNKNOWN INDICATION
     Dosage: 220 MG DAILY
     Route: 048
  7. PRILOSEC [Concomitant]
     Indication: PRODUCT USED FOR UNKNOWN INDICATION
     Dosage: 20 MG DAILY BID
  8. OXYCODONE HCL [Concomitant]
     Indication: PAIN
     Dosage: 5MG UP TO 4 TABS DAILY PRN
     Route: 048
  9. FISH OIL [Concomitant]
     Indication: PRODUCT USED FOR UNKNOWN INDICATION
  10. MULTI-VITAMIN [Concomitant]
     Indication: PRODUCT USED FOR UNKNOWN INDICATION
     Dosage: PO DAILY
  11. AMBIEN [Concomitant]
     Indication: INSOMNIA
     Dosage: 10 MG PO PRN
  12. VANCOMYCIN [Concomitant]
     Indication: PRODUCT USED FOR UNKNOWN INDICATION

REACTIONS (14)
  - ADHESION [None]
  - ANAL FISTULA [None]
  - ARTHRITIS [None]
  - CHOLELITHIASIS [None]
  - CROHN'S DISEASE [None]
  - FEMALE GENITAL TRACT FISTULA [None]
  - FUNGAL SKIN INFECTION [None]
  - INJECTION SITE HAEMATOMA [None]
  - INJECTION SITE PAIN [None]
  - PAIN [None]
  - RECTAL ABSCESS [None]
  - RENAL FAILURE [None]
  - SUBCUTANEOUS ABSCESS [None]
  - WEIGHT DECREASED [None]
